FAERS Safety Report 8184939 (Version 2)
Quarter: 2013Q3

REPORT INFORMATION
  Report Type: Spontaneous
  Country: JP (occurrence: JP)
  Receive Date: 20111018
  Receipt Date: 20130823
  Transmission Date: 20140515
  Serious: Yes (Hospitalization, Other)
  Sender: FDA-Public Use
  Company Number: JP-SANOFI-AVENTIS-2010SA067088

PATIENT
  Age: 79 Year
  Sex: Male

DRUGS (11)
  1. ELPLAT [Suspect]
     Indication: COLON CANCER
     Dosage: 1-11 CYCLES
     Route: 041
     Dates: start: 200812
  2. ELPLAT [Suspect]
     Indication: COLON CANCER
     Route: 041
     Dates: end: 2009
  3. CALCIUM LEVOFOLINATE [Concomitant]
     Indication: COLON CANCER
     Route: 041
     Dates: start: 200812
  4. CALCIUM LEVOFOLINATE [Concomitant]
     Indication: COLON CANCER
     Route: 041
  5. CALCIUM LEVOFOLINATE [Concomitant]
     Indication: COLON CANCER
     Dosage: AS PART OF FOLFIRI REGIMEN
     Dates: end: 2009
  6. 5-FU [Concomitant]
     Indication: COLON CANCER
     Route: 040
     Dates: start: 200812
  7. 5-FU [Concomitant]
     Indication: COLON CANCER
     Route: 041
  8. 5-FU [Concomitant]
     Indication: COLON CANCER
     Route: 040
     Dates: start: 2009, end: 2009
  9. 5-FU [Concomitant]
     Indication: COLON CANCER
     Route: 041
     Dates: start: 2009, end: 2009
  10. 5-FU [Concomitant]
     Indication: COLON CANCER
     Dosage: AS PART OF FOLFIRI REGIMEN
  11. PREDONINE [Concomitant]
     Route: 048

REACTIONS (7)
  - Respiratory failure [Unknown]
  - Drug hypersensitivity [Recovered/Resolved]
  - Lung disorder [Recovered/Resolved]
  - Traumatic lung injury [Recovered/Resolved]
  - Erythema [Recovered/Resolved]
  - Dyspnoea [Recovered/Resolved]
  - Pyrexia [Recovered/Resolved]
